FAERS Safety Report 21753348 (Version 1)
Quarter: 2022Q4

REPORT INFORMATION
  Report Type: Spontaneous
  Country: CA (occurrence: CA)
  Receive Date: 20221220
  Receipt Date: 20221220
  Transmission Date: 20230113
  Serious: Yes (Other)
  Sender: FDA-Public Use
  Company Number: None

PATIENT
  Sex: Female
  Weight: 58 kg

DRUGS (11)
  1. ROSUVASTATIN CALCIUM [Suspect]
     Active Substance: ROSUVASTATIN CALCIUM
     Indication: Blood cholesterol increased
     Dosage: 1 EVERY 1 DAYS
     Route: 048
  2. VITAMIN D [Concomitant]
     Active Substance: VITAMIN D NOS
     Dosage: STRENGTH: 2000 IU
  3. COENZYME Q10 [Concomitant]
     Active Substance: DIETARY SUPPLEMENT\UBIDECARENONE
  4. LEMBOREXANT [Concomitant]
     Active Substance: LEMBOREXANT
  5. EZETIMIBE [Concomitant]
     Active Substance: EZETIMIBE
  6. IMOVANE [Concomitant]
     Active Substance: ZOPICLONE
  7. DOCONEXENT\ICOSAPENT [Concomitant]
     Active Substance: DOCONEXENT\ICOSAPENT
     Dosage: STRENGTH: 500 MG
  8. MAGNESIUM GLYCINATE [Concomitant]
     Active Substance: MAGNESIUM GLYCINATE
  9. PROMETRIUM [Concomitant]
     Active Substance: PROGESTERONE
  10. VITAMIN C [Concomitant]
     Active Substance: ASCORBIC ACID
  11. ROSUVASTATIN CALCIUM [Suspect]
     Active Substance: ROSUVASTATIN CALCIUM
     Indication: Blood cholesterol increased
     Dosage: 2 EVERY 1 DAYS
     Route: 048

REACTIONS (7)
  - Arthralgia [Unknown]
  - Cognitive disorder [Unknown]
  - Extra dose administered [Unknown]
  - Headache [Unknown]
  - Insomnia [Unknown]
  - Lipoprotein (a) increased [Unknown]
  - Myalgia [Unknown]
